FAERS Safety Report 6490134-2 (Version None)
Quarter: 2009Q4

REPORT INFORMATION
  Report Type: 
  Country: None (occurrence: None)
  Receive Date: 20091211
  Receipt Date: 20090528
  Transmission Date: 20100525
  Serious: No
  Sender: FDA-Public Use
  Company Number: A0788619A

PATIENT
  Age: 73 Year
  Sex: Male

DRUGS (2)
  1. FLONASE [Suspect]
     Indication: SINUS DISORDER
     Dosage: 4SPR PER DAY
     Route: 045
     Dates: start: 20070801, end: 20080501
  2. VALIUM [Concomitant]

REACTIONS (3)
  - EXPIRED DRUG ADMINISTERED [None]
  - NASAL CANDIDIASIS [None]
  - ORAL CANDIDIASIS [None]
